FAERS Safety Report 7532461-3 (Version None)
Quarter: 2011Q2

REPORT INFORMATION
  Report Type: 
  Country: None (occurrence: None)
  Receive Date: 20110608
  Receipt Date: 20110526
  Transmission Date: 20111010
  Serious: Yes (Hospitalization)
  Sender: FDA-Public Use
  Company Number: PHHO2011US09018

PATIENT
  Sex: Male
  Weight: 63 kg

DRUGS (9)
  1. COPEGUS [Concomitant]
     Dosage: 200 MG, BID
     Route: 048
     Dates: start: 20110321
  2. PEGASYS [Concomitant]
     Indication: HEPATITIS C
     Dosage: 180 UG, QW
     Route: 058
     Dates: start: 20110307
  3. DIOVAN [Suspect]
     Indication: HYPERTENSION
     Dosage: 320 MG, QD
     Route: 048
     Dates: start: 20110201, end: 20110319
  4. KADIAN [Suspect]
     Indication: BACK PAIN
     Dosage: UNK
     Dates: start: 20110215
  5. FAMOTIDINE [Concomitant]
     Indication: GASTROOESOPHAGEAL REFLUX DISEASE
     Dosage: UNK
  6. DIOVAN [Suspect]
     Dosage: 160 MG, QD
     Route: 048
     Dates: start: 20110323
  7. AMLODIPINE [Suspect]
     Indication: HYPERTENSION
     Dosage: 10 MG, QD
     Route: 048
     Dates: start: 20110125
  8. COPEGUS [Concomitant]
     Indication: HEPATITIS C
     Dosage: 200 MG, BID
     Route: 048
     Dates: start: 20110307
  9. ZOLPIDEM [Concomitant]
     Indication: INSOMNIA
     Dosage: UNK
     Route: 048
     Dates: start: 20110208

REACTIONS (1)
  - DEHYDRATION [None]
